FAERS Safety Report 6273080-9 (Version None)
Quarter: 2009Q3

REPORT INFORMATION
  Report Type: 
  Country: None (occurrence: None)
  Receive Date: 20090715
  Receipt Date: 20090715
  Transmission Date: 20100115
  Serious: No
  Sender: FDA-Public Use
  Company Number: None

PATIENT
  Sex: Female
  Weight: 81.1939 kg

DRUGS (1)
  1. BUPROPION HCL [Suspect]
     Indication: DEPRESSION
     Dosage: ONE PO DAILY
     Route: 048
     Dates: start: 20081101

REACTIONS (4)
  - DRUG INTOLERANCE [None]
  - FEELING JITTERY [None]
  - PALPITATIONS [None]
  - PRODUCT SUBSTITUTION ISSUE [None]
